FAERS Safety Report 6666821-X (Version None)
Quarter: 2010Q2

REPORT INFORMATION
  Report Type: 
  Country: None (occurrence: None)
  Receive Date: 20100401
  Receipt Date: 20100401
  Transmission Date: 20101027
  Serious: Yes (Hospitalization)
  Sender: FDA-Public Use
  Company Number: None

PATIENT
  Age: 51 Year
  Sex: Male

DRUGS (1)
  1. PENICILLIN [Suspect]
     Indication: RENAL FAILURE ACUTE
     Dosage: 500 MG TID PO
     Route: 048

REACTIONS (3)
  - NEPHRITIS [None]
  - RENAL FAILURE ACUTE [None]
  - SERUM SICKNESS [None]
